FAERS Safety Report 5715329-4 (Version None)
Quarter: 2008Q2

REPORT INFORMATION
  Report Type: 
  Country: None (occurrence: None)
  Receive Date: 20080423
  Receipt Date: 20080414
  Transmission Date: 20081010
  Serious: Yes (Hospitalization, Other)
  Sender: FDA-Public Use
  Company Number: US-MERCK-0707USA02677

PATIENT
  Age: 53 Year
  Sex: Female

DRUGS (2)
  1. FOSAMAX [Suspect]
     Indication: OSTEOPOROSIS
     Route: 048
     Dates: start: 20041001, end: 20050601
  2. FOSAMAX [Suspect]
     Indication: HIP FRACTURE
     Route: 048
     Dates: start: 20041001, end: 20050601

REACTIONS (16)
  - CLAVICLE FRACTURE [None]
  - COUGH [None]
  - FIBROMA [None]
  - GINGIVAL DISORDER [None]
  - GINGIVAL INFECTION [None]
  - GINGIVAL PAIN [None]
  - HIP FRACTURE [None]
  - HYPERKERATOSIS [None]
  - KIDNEY INFECTION [None]
  - LEUKOPLAKIA [None]
  - LICHEN PLANUS [None]
  - LOWER LIMB FRACTURE [None]
  - OSTEONECROSIS [None]
  - PERIODONTITIS [None]
  - STOMATITIS [None]
  - WHEEZING [None]
